FAERS Safety Report 20870123 (Version 1)
Quarter: 2022Q2

REPORT INFORMATION
  Report Type: Spontaneous
  Country: CA (occurrence: CA)
  Receive Date: 20220525
  Receipt Date: 20220525
  Transmission Date: 20220721
  Serious: Yes (Hospitalization)
  Sender: FDA-Public Use
  Company Number: CA-TEVA-2022-CA-2038581

PATIENT
  Age: 90 Year
  Sex: Male

DRUGS (4)
  1. QUININE [Suspect]
     Active Substance: QUININE
     Indication: Muscle spasms
     Route: 048
  2. MELOXICAM [Concomitant]
     Active Substance: MELOXICAM
  3. INDAPAMIDE\PERINDOPRIL [Concomitant]
     Active Substance: INDAPAMIDE\PERINDOPRIL
  4. ACETAMINOPHEN\TRAMADOL [Concomitant]
     Active Substance: ACETAMINOPHEN\TRAMADOL

REACTIONS (3)
  - Asthenia [Recovered/Resolved]
  - Fall [Recovered/Resolved]
  - Pyrexia [Recovered/Resolved]
